FAERS Safety Report 11895143 (Version 1)
Quarter: 2016Q1

REPORT INFORMATION
  Report Type: Spontaneous
  Country: US (occurrence: US)
  Receive Date: 20160107
  Receipt Date: 20160107
  Transmission Date: 20160526
  Serious: No
  Sender: FDA-Public Use
  Company Number: US-PFIZER INC-2015446989

PATIENT
  Age: 55 Year
  Sex: Female
  Weight: 57.61 kg

DRUGS (1)
  1. LYRICA [Suspect]
     Active Substance: PREGABALIN
     Dosage: UNK

REACTIONS (3)
  - Drug intolerance [Unknown]
  - Muscle spasms [Unknown]
  - Flatulence [Unknown]
